FAERS Safety Report 7376927-8 (Version None)
Quarter: 2011Q1

REPORT INFORMATION
  Report Type: 
  Country: None (occurrence: None)
  Receive Date: 20110328
  Receipt Date: 20110316
  Transmission Date: 20110831
  Serious: Yes (Hospitalization)
  Sender: FDA-Public Use
  Company Number: JP-AMGEN-JPNSP2011012598

PATIENT
  Age: 66 Year
  Sex: Female
  Weight: 47 kg

DRUGS (14)
  1. FOLIAMIN [Concomitant]
     Dosage: 1 DF, WEEKLY
     Route: 048
     Dates: start: 20110226
  2. ENBREL [Suspect]
     Dosage: UNK
     Route: 058
     Dates: start: 20100501, end: 20110117
  3. MUCOSTA [Concomitant]
     Dosage: UNK
  4. LOXONIN                            /00890702/ [Concomitant]
     Dosage: UNK
  5. PREDNISOLONE [Concomitant]
     Indication: RHEUMATOID ARTHRITIS
     Dosage: 2 TABLETS/DAY
     Route: 048
     Dates: start: 20100501
  6. GASTER [Concomitant]
     Indication: GASTROINTESTINAL DISORDER
     Dosage: 1 TABLET/DAY
     Route: 048
  7. FOLIAMIN [Concomitant]
     Indication: PROPHYLAXIS
     Dosage: 1 DF, WEEKLY
     Route: 048
     Dates: start: 20100501
  8. ENBREL [Suspect]
     Dosage: 25 MG, WEEKLY
     Route: 058
     Dates: start: 20110226, end: 20110226
  9. METHOTREXATE [Suspect]
     Dosage: 4 MG, WEEKLY
     Route: 048
     Dates: start: 20110224, end: 20110224
  10. MUCODYNE [Concomitant]
     Indication: PRODUCTIVE COUGH
     Dosage: 6 TABLETS/DAY
     Route: 048
     Dates: start: 20110221, end: 20110303
  11. ENBREL [Suspect]
     Indication: RHEUMATOID ARTHRITIS
     Dosage: 25 MG, WEEKLY
     Route: 058
     Dates: end: 20110120
  12. METHOTREXATE [Suspect]
     Indication: RHEUMATOID ARTHRITIS
     Dosage: 4 MG, WEEKLY
     Route: 048
     Dates: end: 20110120
  13. METHOTREXATE [Suspect]
     Dosage: 4 MG, WEEKLY
     Route: 048
     Dates: start: 20100501, end: 20110117
  14. CLARITHROMYCIN [Concomitant]
     Indication: INFECTION PROPHYLAXIS
     Dosage: 2 TABLETS/DAY
     Route: 048

REACTIONS (2)
  - BONE MARROW FAILURE [None]
  - ORTHOPEDIC PROCEDURE [None]
